FAERS Safety Report 14215276 (Version 1)
Quarter: 2017Q4

REPORT INFORMATION
  Report Type: Spontaneous
  Country: PL (occurrence: PL)
  Receive Date: 20171122
  Receipt Date: 20171122
  Transmission Date: 20180321
  Serious: Yes (Hospitalization)
  Sender: FDA-Public Use
  Company Number: PL-JNJFOC-20171030325

PATIENT
  Sex: Female
  Weight: 54.5 kg

DRUGS (1)
  1. IMBRUVICA [Suspect]
     Active Substance: IBRUTINIB
     Indication: LYMPHOCYTIC LEUKAEMIA
     Dosage: DRUG ADMINISTRATION: ONGOING (AS OF 12-JAN-2017)
     Route: 048
     Dates: start: 201505

REACTIONS (1)
  - Panniculitis [Recovering/Resolving]
